FAERS Safety Report 9844605 (Version 1)
Quarter: 2014Q1

REPORT INFORMATION
  Report Type: Spontaneous
  Country: US (occurrence: None)
  Receive Date: 20140123
  Receipt Date: 20140123
  Transmission Date: 20141002
  Serious: Yes (Life-Threatening, Hospitalization, Other)
  Sender: FDA-Public Use
  Company Number: US-ZYDUS-002482

PATIENT
  Age: 50 Year
  Sex: Male

DRUGS (3)
  1. LISINOPRIL (LISINOPRIL) [Suspect]
  2. AMLODIPINE (AMLODIPINE) [Suspect]
  3. HYDROCHLOROTHIAZIDE (HYDROCHLOROTHIAZIDE) [Suspect]

REACTIONS (5)
  - Overdose [None]
  - Respiratory failure [None]
  - Shock [None]
  - Suicide attempt [None]
  - Depressed level of consciousness [None]
